FAERS Safety Report 4912120-3 (Version None)
Quarter: 2006Q1

REPORT INFORMATION
  Report Type: 
  Country: None (occurrence: None)
  Receive Date: 20060215
  Receipt Date: 20050707
  Transmission Date: 20060701
  Serious: No
  Sender: FDA-Public Use
  Company Number: US-GLAXOSMITHKLINE-A0565458A

PATIENT
  Age: 30 Year
  Sex: Female

DRUGS (2)
  1. VALTREX [Suspect]
     Route: 048
     Dates: start: 20050528
  2. BENADRYL [Suspect]
     Dosage: 2TAB AS REQUIRED
     Route: 048
     Dates: start: 20050528

REACTIONS (2)
  - DRUG INEFFECTIVE [None]
  - SWELLING FACE [None]
